FAERS Safety Report 14333783 (Version 1)
Quarter: 2017Q4

REPORT INFORMATION
  Report Type: Spontaneous
  Country: US (occurrence: US)
  Receive Date: 20171228
  Receipt Date: 20171228
  Transmission Date: 20180321
  Serious: Yes (Other)
  Sender: FDA-Public Use
  Company Number: US-DUCHESNAY INC.-2037929

PATIENT
  Age: 51 Year
  Sex: Female

DRUGS (4)
  1. ARTHRITIS MEDICATION [Concomitant]
     Active Substance: UNSPECIFIED INGREDIENT
  2. BLOOD PRESSURE PILLS [Concomitant]
     Active Substance: UNSPECIFIED INGREDIENT
  3. THYROID MEDICATION [Concomitant]
     Active Substance: UNSPECIFIED INGREDIENT
  4. OSPHENA [Suspect]
     Active Substance: OSPEMIFENE
     Indication: DYSPAREUNIA
     Route: 048
     Dates: start: 20170927, end: 20171101

REACTIONS (2)
  - Breast discharge [Unknown]
  - Vaginal haemorrhage [Unknown]

NARRATIVE: CASE EVENT DATE: 201710
